FAERS Safety Report 15196862 (Version 1)
Quarter: 2018Q3

REPORT INFORMATION
  Report Type: Spontaneous
  Country: US (occurrence: US)
  Receive Date: 20180626
  Receipt Date: 20180626
  Transmission Date: 20181010
  Serious: Yes (Hospitalization, Other)
  Sender: FDA-Public Use
  Company Number: None

PATIENT
  Age: 82 Year
  Sex: Female
  Weight: 41.6 kg

DRUGS (12)
  1. KEYTRUDA [Suspect]
     Active Substance: PEMBROLIZUMAB
     Indication: NON-SMALL CELL LUNG CANCER
     Route: 042
     Dates: start: 20170531
  2. DENOSUMAB [Concomitant]
     Active Substance: DENOSUMAB
  3. MECLIZINE [Concomitant]
     Active Substance: MECLIZINE HYDROCHLORIDE
  4. DOCUSATE [Concomitant]
     Active Substance: DOCUSATE
  5. CLOPIDOGREL [Concomitant]
     Active Substance: CLOPIDOGREL BISULFATE
  6. IRBESARTAN. [Concomitant]
     Active Substance: IRBESARTAN
  7. MEGESTROL [Concomitant]
     Active Substance: MEGESTROL
  8. PANTROPRAZOLE [Concomitant]
  9. ATORVASTATIN [Concomitant]
     Active Substance: ATORVASTATIN
  10. GABAPENTIN. [Concomitant]
     Active Substance: GABAPENTIN
  11. CHOLECALCIFEROL [Concomitant]
     Active Substance: CHOLECALCIFEROL
  12. OXYCODONE [Concomitant]
     Active Substance: OXYCODONE

REACTIONS (4)
  - C-reactive protein increased [None]
  - Chest discomfort [None]
  - Electrocardiogram ST segment elevation [None]
  - Pericarditis [None]
